FAERS Safety Report 6394724-7 (Version None)
Quarter: 2009Q4

REPORT INFORMATION
  Report Type: 
  Country: None (occurrence: None)
  Receive Date: 20091009
  Receipt Date: 20090810
  Transmission Date: 20100525
  Serious: No
  Sender: FDA-Public Use
  Company Number: US-BAYER-200930028NA

PATIENT
  Age: 30 Year
  Sex: Female

DRUGS (2)
  1. MIRENA [Suspect]
     Indication: CONTRACEPTION
     Route: 015
     Dates: start: 20090806, end: 20090806
  2. MIRENA [Suspect]
     Route: 015
     Dates: start: 20090801

REACTIONS (2)
  - COMPLICATION OF DEVICE INSERTION [None]
  - DEVICE EXPULSION [None]
